FAERS Safety Report 4309668-1 (Version None)
Quarter: 2004Q1

REPORT INFORMATION
  Report Type: 
  Country: None (occurrence: None)
  Receive Date: 20040301
  Receipt Date: 20030217
  Transmission Date: 20041129
  Serious: Yes (Hospitalization, Other)
  Sender: FDA-Public Use
  Company Number: KII-2003-0007120

PATIENT
  Age: 37 Year
  Sex: Male

DRUGS (4)
  1. MS CONTIN [Suspect]
     Indication: PAIN
     Dosage: ORAL
     Route: 048
  2. ZYPREXA [Concomitant]
  3. SOMA [Concomitant]
  4. CIPRO [Concomitant]

REACTIONS (27)
  - ABDOMINAL DISTENSION [None]
  - ABNORMAL BEHAVIOUR [None]
  - AGITATION [None]
  - ASTHENIA [None]
  - ASTHMA [None]
  - BODY TEMPERATURE INCREASED [None]
  - BOWEL SOUNDS ABNORMAL [None]
  - COMA [None]
  - CONFUSIONAL STATE [None]
  - DYSARTHRIA [None]
  - DYSPNOEA [None]
  - FLUSHING [None]
  - GASTROINTESTINAL HAEMORRHAGE [None]
  - ILEUS [None]
  - MENTAL STATUS CHANGES [None]
  - MIOSIS [None]
  - MYDRIASIS [None]
  - OVERDOSE [None]
  - OXYGEN SATURATION DECREASED [None]
  - PNEUMONIA ASPIRATION [None]
  - RESPIRATORY DISTRESS [None]
  - RHONCHI [None]
  - SINUS TACHYCARDIA [None]
  - SOMNOLENCE [None]
  - URINARY INCONTINENCE [None]
  - WHEEZING [None]
  - WHITE BLOOD CELL COUNT ABNORMAL [None]
